FAERS Safety Report 8292312-9 (Version None)
Quarter: 2012Q2

REPORT INFORMATION
  Report Type: 
  Country: None (occurrence: None)
  Receive Date: 20120417
  Receipt Date: 20120413
  Transmission Date: 20120825
  Serious: Yes (Other)
  Sender: FDA-Public Use
  Company Number: US-TEVA-329891USA

PATIENT
  Sex: Female

DRUGS (4)
  1. ANTIHYPERTENSIVES [Concomitant]
     Indication: HYPERTENSION
     Route: 048
  2. DULOXETINE HYDROCHLORIDE [Concomitant]
     Route: 048
  3. ARIPIPRAZOLE [Concomitant]
     Route: 048
  4. COPAXONE [Suspect]
     Indication: MULTIPLE SCLEROSIS
     Dosage: 20 MILLIGRAM;
     Route: 058
     Dates: start: 20110203

REACTIONS (8)
  - ELECTROCARDIOGRAM CHANGE [None]
  - MYOCARDIAL INFARCTION [None]
  - CHEST PAIN [None]
  - DEPRESSION [None]
  - URINARY TRACT INFECTION [None]
  - BLOOD PRESSURE INCREASED [None]
  - FALL [None]
  - DYSPNOEA [None]
